FAERS Safety Report 6074347-X (Version None)
Quarter: 2009Q1

REPORT INFORMATION
  Report Type: 
  Country: None (occurrence: None)
  Receive Date: 20090211
  Receipt Date: 20090209
  Transmission Date: 20090719
  Serious: Yes (Hospitalization)
  Sender: FDA-Public Use
  Company Number: JP-B.I. PHARMACEUTICALS,INC./RIDGEFIELD-2008-BP-06588NB

PATIENT
  Sex: Female
  Weight: 45.2 kg

DRUGS (9)
  1. MICARDIS [Suspect]
     Indication: HYPERTENSION
     Dosage: 40MG
     Route: 048
     Dates: start: 20070219
  2. LASIX [Concomitant]
     Indication: HYPERTENSION
     Dosage: 20MG
     Route: 048
  3. FAMOSTAGINE [Concomitant]
     Indication: PROPHYLAXIS
     Dosage: 40MG
     Route: 048
  4. ASPIRIN [Concomitant]
     Indication: PROPHYLAXIS
     Dosage: 100MG
     Route: 048
  5. ALDACTONE [Concomitant]
     Indication: HYPERTENSION
     Dosage: 25MG
     Route: 048
  6. ZYLORIC [Concomitant]
     Dosage: 100MG
     Route: 048
  7. LIVALO [Concomitant]
     Dosage: 1MG
     Route: 048
  8. LOPRESSOR [Concomitant]
     Indication: HYPERTENSION
     Dosage: 40MG
     Route: 048
     Dates: end: 20080101
  9. MILLIS (NITROGLYCERIN) [Concomitant]
     Indication: PROPHYLAXIS
     Dosage: 10MG
     Route: 062
     Dates: end: 20080101

REACTIONS (1)
  - CARDIAC FAILURE [None]
